FAERS Safety Report 7027523-3 (Version None)
Quarter: 2010Q4

REPORT INFORMATION
  Report Type: 
  Country: None (occurrence: None)
  Receive Date: 20101004
  Receipt Date: 20100921
  Transmission Date: 20110411
  Serious: Yes (Hospitalization, Other)
  Sender: FDA-Public Use
  Company Number: PHHY2010IT61452

PATIENT
  Age: 74 Year
  Sex: Female

DRUGS (4)
  1. VALSARTAN  AND HYDROCHLOROTHIAZIDE [Suspect]
     Dosage: 160/12.5 MG
     Dates: start: 20080130
  2. BISOPROLOL [Concomitant]
     Dosage: 2.5 MG/DAY
  3. ASPIRIN [Concomitant]
     Dosage: 100 MG/DAY
  4. AMLODIPINE [Concomitant]
     Dosage: 10 MG/DAY

REACTIONS (8)
  - ACIDOSIS [None]
  - BLOOD PRESSURE DECREASED [None]
  - DYSPNOEA [None]
  - NON-CARDIOGENIC PULMONARY OEDEMA [None]
  - PULMONARY CONGESTION [None]
  - RENAL FAILURE [None]
  - RENAL FAILURE ACUTE [None]
  - SINUS TACHYCARDIA [None]
